FAERS Safety Report 12276267 (Version 1)
Quarter: 2016Q2

REPORT INFORMATION
  Report Type: Spontaneous
  Country: FR (occurrence: FR)
  Receive Date: 20160418
  Receipt Date: 20160418
  Transmission Date: 20160815
  Serious: Yes (Congenital Anomaly)
  Sender: FDA-Public Use
  Company Number: FR-ROCHE-1741231

PATIENT
  Sex: Male
  Weight: 2.44 kg

DRUGS (1)
  1. LUCENTIS [Suspect]
     Active Substance: RANIBIZUMAB
     Indication: PRODUCT USED FOR UNKNOWN INDICATION
     Route: 064

REACTIONS (5)
  - Cyanosis [Recovered/Resolved]
  - Foetal growth restriction [Recovering/Resolving]
  - Infantile haemangioma [Recovering/Resolving]
  - Hypotonia [Recovered/Resolved]
  - Congenital deformity of clavicle [Not Recovered/Not Resolved]

NARRATIVE: CASE EVENT DATE: 2015
